FAERS Safety Report 16290638 (Version 1)
Quarter: 2019Q2

REPORT INFORMATION
  Report Type: Spontaneous
  Country: US (occurrence: US)
  Receive Date: 20190509
  Receipt Date: 20190509
  Transmission Date: 20190711
  Serious: Yes (Hospitalization)
  Sender: FDA-Public Use
  Company Number: US-009507513-1905USA000355

PATIENT
  Age: 80 Year
  Sex: Female
  Weight: 52.62 kg

DRUGS (8)
  1. SERTRALINE HYDROCHLORIDE. [Suspect]
     Active Substance: SERTRALINE HYDROCHLORIDE
     Dosage: 50 MILLIGRAM TABLET ONCE A DAY
     Route: 048
  2. SERTRALINE HYDROCHLORIDE. [Suspect]
     Active Substance: SERTRALINE HYDROCHLORIDE
     Indication: DEATH OF RELATIVE
     Dosage: 25 MILLIGRAM TABLET ONCE DAILY
     Route: 048
     Dates: start: 2002, end: 201602
  3. SERTRALINE HYDROCHLORIDE. [Suspect]
     Active Substance: SERTRALINE HYDROCHLORIDE
     Dosage: 25 MILLIGRAM TABLET ONCE A DAY
     Route: 048
  4. ALPRAZOLAM. [Concomitant]
     Active Substance: ALPRAZOLAM
     Indication: FEELING ABNORMAL
     Dosage: 0.5 MILLIGRAM TABLET TWICE A DAY
     Route: 048
     Dates: start: 2002
  5. SERTRALINE HYDROCHLORIDE. [Suspect]
     Active Substance: SERTRALINE HYDROCHLORIDE
     Dosage: 100 MILLIGRAM TABLET ONCE A DAY
     Route: 048
  6. ASPIRIN. [Concomitant]
     Active Substance: ASPIRIN
     Indication: CARDIOVASCULAR DISORDER
     Dosage: 81 MILLIGRAM TABLET ONCE A DAY
     Route: 048
  7. ATORVASTATIN [Suspect]
     Active Substance: ATORVASTATIN
     Indication: BLOOD CHOLESTEROL
     Dosage: 10 MILLIGRAM TABLET ONCE A DAY
     Route: 048
     Dates: start: 2017, end: 20171103
  8. ZOCOR [Suspect]
     Active Substance: SIMVASTATIN
     Indication: BLOOD CHOLESTEROL
     Dosage: 10 MILLIGRAM TABLET ONCE A DAY
     Route: 048
     Dates: start: 2013

REACTIONS (12)
  - Malaise [Unknown]
  - Trigeminal neuralgia [Recovered/Resolved]
  - Aphasia [Recovered/Resolved]
  - Pain in extremity [Recovering/Resolving]
  - Confusional state [Recovered/Resolved]
  - Pain in extremity [Unknown]
  - Feeling abnormal [Recovering/Resolving]
  - Confusional state [Unknown]
  - Fatigue [Unknown]
  - Pollakiuria [Recovered/Resolved]
  - Aphasia [Unknown]
  - Blood pressure increased [Recovered/Resolved]

NARRATIVE: CASE EVENT DATE: 2013
